FAERS Safety Report 19731421 (Version 1)
Quarter: 2021Q3

REPORT INFORMATION
  Report Type: Spontaneous
  Country: NZ (occurrence: NZ)
  Receive Date: 20210820
  Receipt Date: 20210820
  Transmission Date: 20211014
  Serious: Yes (Hospitalization)
  Sender: FDA-Public Use
  Company Number: NZ-ASTRAZENECA-2021A686522

PATIENT
  Age: 81 Year
  Sex: Male

DRUGS (7)
  1. DILTIAZEM. [Concomitant]
     Active Substance: DILTIAZEM
  2. WARFARIN [Concomitant]
     Active Substance: WARFARIN
  3. ASPIRIN. [Concomitant]
     Active Substance: ASPIRIN
  4. OMEPRAZOLE. [Suspect]
     Active Substance: OMEPRAZOLE
     Route: 048
  5. DABIGATRAN [Interacting]
     Active Substance: DABIGATRAN
     Route: 065
  6. IDARUCIZUMAB [Concomitant]
     Active Substance: IDARUCIZUMAB
     Dosage: 5 MG
  7. INTRAVENOUS ALTEPLASE [Concomitant]
     Dosage: (TOTAL DOSE 63.9 MG)

REACTIONS (2)
  - Drug interaction [Unknown]
  - Cerebrovascular accident [Unknown]
